FAERS Safety Report 4985639-7 (Version None)
Quarter: 2006Q2

REPORT INFORMATION
  Report Type: 
  Country: None (occurrence: None)
  Receive Date: 20060428
  Receipt Date: 20060421
  Transmission Date: 20061013
  Serious: Yes (Other)
  Sender: FDA-Public Use
  Company Number: PHEH2006US05249

PATIENT

DRUGS (2)
  1. VOLTAREN [Suspect]
     Dosage: UNK GTT, UNK
  2. PREDNISONE [Suspect]
     Dosage: UNK GTT, UNK

REACTIONS (3)
  - BLINDNESS UNILATERAL [None]
  - EYE OPERATION [None]
  - STREPTOCOCCAL INFECTION [None]
